FAERS Safety Report 20212909 (Version 1)
Quarter: 2021Q4

REPORT INFORMATION
  Report Type: Spontaneous
  Country: NL (occurrence: NL)
  Receive Date: 20211221
  Receipt Date: 20211221
  Transmission Date: 20220304
  Serious: Yes (Other)
  Sender: FDA-Public Use
  Company Number: None

PATIENT
  Age: 86 Year
  Sex: Female
  Weight: 80 kg

DRUGS (2)
  1. LOSARTAN [Suspect]
     Active Substance: LOSARTAN
     Indication: Product used for unknown indication
     Dosage: THERAPY START DATE :ASKU,THERAPY END DATE :ASKU ,LOSARTAN TABLET FO  25MG / BRAND NAME NOT SPECIFIED
  2. AMLODIPINE [Concomitant]
     Active Substance: AMLODIPINE BESYLATE
     Dosage: 5 MG (MILLIGRAM),THERAPY START DATE :ASKU,THERAPY END DATE :ASKU,AMLODIPINE TABLET   5MG / BRAND NAM

REACTIONS (1)
  - Renal impairment [Recovered/Resolved]

NARRATIVE: CASE EVENT DATE: 20190101
